FAERS Safety Report 8314601-1 (Version None)
Quarter: 2012Q2

REPORT INFORMATION
  Report Type: 
  Country: None (occurrence: None)
  Receive Date: 20120426
  Receipt Date: 20120423
  Transmission Date: 20120825
  Serious: Yes (Other)
  Sender: FDA-Public Use
  Company Number: US-BAYER-2012-040435

PATIENT
  Age: 55 Year
  Sex: Female

DRUGS (1)
  1. MAGNEVIST [Suspect]
     Indication: NUCLEAR MAGNETIC RESONANCE IMAGING
     Dosage: 14 ML, ONCE
     Dates: start: 20120419, end: 20120419

REACTIONS (6)
  - DIARRHOEA [None]
  - SWELLING FACE [None]
  - URTICARIA [None]
  - VOMITING [None]
  - ERYTHEMA [None]
  - EYE SWELLING [None]
